FAERS Safety Report 7294184-8 (Version None)
Quarter: 2011Q1

REPORT INFORMATION
  Report Type: 
  Country: None (occurrence: None)
  Receive Date: 20110215
  Receipt Date: 20110204
  Transmission Date: 20110831
  Serious: Yes (Hospitalization, Other)
  Sender: FDA-Public Use
  Company Number: PT-BAXTER-2011BH002926

PATIENT
  Sex: Female

DRUGS (4)
  1. PHYSIOSOL IN PLASTIC CONTAINER [Suspect]
     Indication: PERITONEAL DIALYSIS
     Route: 033
     Dates: end: 20110128
  2. EXTRANEAL [Suspect]
     Route: 033
  3. NUTRINEAL [Suspect]
     Indication: PERITONEAL DIALYSIS
     Route: 033
  4. EXTRANEAL [Suspect]
     Indication: PERITONEAL DIALYSIS
     Route: 033
     Dates: end: 20110121

REACTIONS (3)
  - DISEASE COMPLICATION [None]
  - PERITONITIS [None]
  - PERITONITIS BACTERIAL [None]
